FAERS Safety Report 16878737 (Version 2)
Quarter: 2019Q4

REPORT INFORMATION
  Report Type: Report from Study
  Country: US (occurrence: US)
  Receive Date: 20191002
  Receipt Date: 20191106
  Transmission Date: 20200122
  Serious: Yes (Hospitalization, Other)
  Sender: FDA-Public Use
  Company Number: US-SA-2019SA266548

PATIENT
  Age: 58 Year
  Sex: Female

DRUGS (17)
  1. AZELASTINE HYDROCHLORIDE. [Concomitant]
     Active Substance: AZELASTINE HYDROCHLORIDE
  2. DUPILUMAB [Suspect]
     Active Substance: DUPILUMAB
     Dosage: 300 MG, QOW
     Route: 058
     Dates: start: 20190908
  3. BENADRYL ALLERGY [Concomitant]
     Active Substance: DIPHENHYDRAMINE HYDROCHLORIDE
  4. SPIRIVA [Concomitant]
     Active Substance: TIOTROPIUM BROMIDE MONOHYDRATE
  5. VITAMIN D 2000 [Concomitant]
     Active Substance: VITAMIN D NOS
  6. LATANOPROST. [Concomitant]
     Active Substance: LATANOPROST
  7. METFORMIN HCL [Concomitant]
     Active Substance: METFORMIN HYDROCHLORIDE
  8. DORZOLAMIDE [Concomitant]
     Active Substance: DORZOLAMIDE
  9. VITAMIN B12 [VITAMIN B12 NOS] [Concomitant]
     Active Substance: CYANOCOBALAMIN
  10. ALBUTEROL SULFATE. [Concomitant]
     Active Substance: ALBUTEROL SULFATE
  11. AMLODIPINE [AMLODIPINE BESILATE] [Concomitant]
     Active Substance: AMLODIPINE BESYLATE
  12. FUROSEMIDE. [Concomitant]
     Active Substance: FUROSEMIDE
  13. VENTOLIN [Concomitant]
     Active Substance: ALBUTEROL SULFATE
  14. DUPILUMAB [Suspect]
     Active Substance: DUPILUMAB
     Indication: ASTHMA
     Dosage: 600 MG, 1X
     Route: 058
     Dates: start: 20190825, end: 20190825
  15. LORATADINE. [Concomitant]
     Active Substance: LORATADINE
  16. LOSARTAN POTASSIUM. [Concomitant]
     Active Substance: LOSARTAN POTASSIUM
  17. PREDNISOLONE. [Concomitant]
     Active Substance: PREDNISOLONE

REACTIONS (8)
  - Gait disturbance [Unknown]
  - Vision blurred [Unknown]
  - Product use issue [Unknown]
  - Blood glucose increased [Unknown]
  - Feeling abnormal [Unknown]
  - Pyrexia [Unknown]
  - Eosinophil count increased [Unknown]
  - Pulmonary oedema [Unknown]
